FAERS Safety Report 8607128 (Version 4)
Quarter: 2014Q1

REPORT INFORMATION
  Report Type: Spontaneous
  Country: US (occurrence: US)
  Receive Date: 20120611
  Receipt Date: 20140103
  Transmission Date: 20141002
  Serious: Yes (Hospitalization, Disabling)
  Sender: FDA-Public Use
  Company Number: US-ASTRAZENECA-2012SE34429

PATIENT
  Age: 578 Month
  Sex: Female

DRUGS (32)
  1. NEXIUM [Suspect]
     Indication: GASTROOESOPHAGEAL REFLUX DISEASE
     Route: 048
     Dates: start: 2004
  2. NEXIUM [Suspect]
     Indication: GASTROOESOPHAGEAL REFLUX DISEASE
     Route: 048
     Dates: start: 20060320
  3. NEXIUM [Suspect]
     Indication: GASTROOESOPHAGEAL REFLUX DISEASE
     Route: 048
     Dates: start: 20120516
  4. PREVACID [Concomitant]
  5. SUCRALFATE [Concomitant]
     Dates: start: 2005
  6. ZANTAC [Concomitant]
     Dates: start: 20120309
  7. ALKA-SELTZER [Concomitant]
     Dosage: ONE TABLET
  8. MILK OF MAGNESIA [Concomitant]
     Dosage: ONE TABLET
  9. ROLAIDS [Concomitant]
  10. CRESTOR [Concomitant]
  11. ZOLOFT [Concomitant]
  12. PROBIOTIC ACIDOPHILUS FIBER [Concomitant]
  13. TRAMODOL [Concomitant]
  14. PROMETHAZINE [Concomitant]
  15. GLYCOPYRROLATE [Concomitant]
  16. BISOPROLOL/HCT [Concomitant]
     Dosage: 2.5/6.25 MG
     Dates: start: 20040212
  17. AMOXICILLIN [Concomitant]
     Dates: start: 20041207
  18. ULTRACET [Concomitant]
     Dosage: 37.5/325 MG
     Dates: start: 20050208
  19. CYCLOBENZAPRINE [Concomitant]
     Dates: start: 20050404
  20. NITROFURANTOIN [Concomitant]
     Dates: start: 20050419
  21. DIAZEPAM [Concomitant]
     Dates: start: 20050910
  22. CYMBALTA [Concomitant]
     Dates: start: 20051107
  23. LUNESTA [Concomitant]
     Dates: start: 20051107
  24. PAXIL [Concomitant]
     Dates: start: 20060216
  25. METRONIDAZOLE [Concomitant]
     Dates: start: 20071016
  26. PRISTIQ [Concomitant]
     Dates: start: 20090421
  27. FLUOXETINE [Concomitant]
     Dates: start: 20100817
  28. ALPRAZOLAM [Concomitant]
     Dates: start: 20101201
  29. PREDNISONE [Concomitant]
     Dates: start: 20101027
  30. METHOCARBAMOL [Concomitant]
     Dates: start: 20110902
  31. LORAZEPAM [Concomitant]
     Dates: start: 20130509
  32. METHYLPREDNISOLONE [Concomitant]
     Dates: start: 20130715

REACTIONS (19)
  - Cervical spinal stenosis [Unknown]
  - Ankle fracture [Unknown]
  - Stress [Unknown]
  - Diverticulitis [Unknown]
  - Hypertension [Unknown]
  - Fall [Unknown]
  - Osteoporosis [Unknown]
  - Bone disorder [Unknown]
  - Multiple fractures [Unknown]
  - Rib fracture [Unknown]
  - Multi-vitamin deficiency [Unknown]
  - Hypoaesthesia [Unknown]
  - Rotator cuff syndrome [Unknown]
  - Arthritis [Unknown]
  - Calcium deficiency [Unknown]
  - Vitamin D deficiency [Unknown]
  - Depression [Unknown]
  - Intervertebral disc degeneration [Unknown]
  - Osteoarthritis [Unknown]
